FAERS Safety Report 11537678 (Version 2)
Quarter: 2015Q3

REPORT INFORMATION
  Report Type: Report from Study
  Country: PH (occurrence: PH)
  Receive Date: 20150922
  Receipt Date: 20150928
  Transmission Date: 20151125
  Serious: Yes (Life-Threatening)
  Sender: FDA-Public Use
  Company Number: PH-JNJFOC-20150914574

PATIENT
  Age: 33 Year
  Sex: Female
  Weight: 54 kg

DRUGS (6)
  1. REMICADE [Suspect]
     Active Substance: INFLIXIMAB
     Indication: SYSTEMIC LUPUS ERYTHEMATOSUS
     Route: 042
     Dates: start: 20130727, end: 20150211
  2. ALDOMET [Suspect]
     Active Substance: METHYLDOPA
     Indication: HYPERTENSION
     Route: 048
     Dates: start: 2006
  3. ISOXILAN [Suspect]
     Active Substance: ISOXSUPRINE HYDROCHLORIDE
     Indication: PRODUCT USED FOR UNKNOWN INDICATION
     Route: 048
     Dates: start: 201504
  4. OBIMIN [Concomitant]
     Route: 048
     Dates: start: 201504
  5. REMICADE [Suspect]
     Active Substance: INFLIXIMAB
     Indication: CROHN^S DISEASE
     Route: 042
     Dates: start: 20130727, end: 20150211
  6. CALCIUM [Concomitant]
     Active Substance: CALCIUM
     Route: 048
     Dates: start: 201504

REACTIONS (2)
  - Exposure during pregnancy [Unknown]
  - Product use issue [Recovered/Resolved]

NARRATIVE: CASE EVENT DATE: 20130727
